FAERS Safety Report 5750612-8 (Version None)
Quarter: 2008Q2

REPORT INFORMATION
  Report Type: 
  Country: None (occurrence: None)
  Receive Date: 20080528
  Receipt Date: 20080515
  Transmission Date: 20081010
  Serious: Yes (Other)
  Sender: FDA-Public Use
  Company Number: JP-ROCHE-560091

PATIENT
  Sex: Male
  Weight: 23 kg

DRUGS (7)
  1. TAMIFLU [Suspect]
     Indication: INFLUENZA
     Dosage: FORM DRY SYRUP
     Route: 048
     Dates: start: 20080215, end: 20080216
  2. ASVERIN [Concomitant]
     Route: 048
     Dates: start: 20080215, end: 20080220
  3. PERIACTIN [Concomitant]
     Route: 048
     Dates: start: 20080215, end: 20080220
  4. MUCOSAL [Concomitant]
     Route: 048
     Dates: start: 20080215, end: 20080220
  5. SENEGA [Concomitant]
     Route: 048
     Dates: start: 20080215, end: 20080220
  6. CALONAL [Concomitant]
     Dosage: FORM FINE GRANULE
     Route: 048
     Dates: start: 20080215, end: 20080217
  7. SP [Concomitant]
     Dosage: FORM LOZENGE; ROUTE: OROPHARYNGEAL
     Route: 048
     Dates: start: 20080215, end: 20080217

REACTIONS (1)
  - ABNORMAL BEHAVIOUR [None]
